FAERS Safety Report 5815353-7 (Version None)
Quarter: 2008Q3

REPORT INFORMATION
  Report Type: 
  Country: None (occurrence: None)
  Receive Date: 20080718
  Receipt Date: 20080707
  Transmission Date: 20090109
  Serious: Yes (Hospitalization, Other)
  Sender: FDA-Public Use
  Company Number: FR-PFIZER INC-2008040380

PATIENT
  Sex: Female
  Weight: 70 kg

DRUGS (10)
  1. LYRICA [Suspect]
     Route: 048
  2. ESCITALOPRAM OXALATE [Concomitant]
     Route: 048
  3. NEBILOX [Concomitant]
     Route: 048
  4. ACETAMINOPHEN [Concomitant]
     Route: 048
  5. TENSTATEN [Concomitant]
     Route: 048
  6. PREVISCAN [Concomitant]
     Route: 048
  7. SKENAN [Concomitant]
     Route: 048
  8. PREDNISONE TAB [Concomitant]
  9. NEXIUM [Concomitant]
  10. POTASSIUM CHLORIDE [Concomitant]

REACTIONS (6)
  - ATAXIA [None]
  - CONFUSIONAL STATE [None]
  - DYSAESTHESIA [None]
  - DYSKINESIA [None]
  - LYMPHOMA [None]
  - NEURALGIA [None]
